FAERS Safety Report 12902633 (Version 1)
Quarter: 2016Q4

REPORT INFORMATION
  Report Type: Spontaneous
  Country: DE (occurrence: DE)
  Receive Date: 20161102
  Receipt Date: 20161102
  Transmission Date: 20170207
  Serious: Yes (Other)
  Sender: FDA-Public Use
  Company Number: DE-GLAXOSMITHKLINE-DE2016GSK161130

PATIENT
  Sex: Female

DRUGS (3)
  1. ZONISAMIDE. [Suspect]
     Active Substance: ZONISAMIDE
     Indication: EPILEPSY
     Dosage: 100 MG, Z, FIVE TIMES PER DAY
  2. LEVETIRACETAM. [Suspect]
     Active Substance: LEVETIRACETAM
     Indication: EPILEPSY
     Dosage: 1000 MG, TID
  3. TROBALT [Suspect]
     Active Substance: EZOGABINE
     Indication: EPILEPSY
     Dosage: 150 MG, BID
     Dates: start: 2011

REACTIONS (3)
  - Foetal exposure during pregnancy [Unknown]
  - Renal transplant [Unknown]
  - Congenital nephrotic syndrome [Unknown]
